FAERS Safety Report 10578854 (Version 3)
Quarter: 2014Q4

REPORT INFORMATION
  Report Type: Spontaneous
  Country: BR (occurrence: BR)
  Receive Date: 20141112
  Receipt Date: 20141121
  Transmission Date: 20150529
  Serious: Yes (Disabling, Other)
  Sender: FDA-Public Use
  Company Number: BR-HORIZON-VIM-0098-2014

PATIENT
  Age: 52 Year
  Sex: Male
  Weight: 92 kg

DRUGS (10)
  1. VIMOVO [Suspect]
     Active Substance: ESOMEPRAZOLE MAGNESIUM\NAPROXEN
     Indication: RHEUMATOID ARTHRITIS
     Dosage: BID
     Route: 048
     Dates: start: 2014, end: 2014
  2. UNSPECIFIED COMPOUNDED MEDICATOIN [Concomitant]
     Indication: PROSTATOMEGALY
     Route: 048
     Dates: start: 2010
  3. HUMIRA [Concomitant]
     Active Substance: ADALIMUMAB
     Indication: RHEUMATOID ARTHRITIS
     Dates: end: 2014
  4. OMEPRAZOLE. [Suspect]
     Active Substance: OMEPRAZOLE
     Indication: PROPHYLAXIS
     Dosage: AS REQUIRED
     Route: 048
     Dates: start: 1999
  5. CIMZIA [Suspect]
     Active Substance: CERTOLIZUMAB PEGOL
     Indication: RHEUMATOID ARTHRITIS
     Dosage: 200MG/ML, MONTH
     Route: 058
     Dates: start: 201409, end: 2014
  6. CIMZIA [Suspect]
     Active Substance: CERTOLIZUMAB PEGOL
     Indication: RHEUMATOID ARTHRITIS
     Dosage: 200MG/ML
     Route: 058
     Dates: start: 201405, end: 20140627
  7. GLIBENCLAMIDE [Concomitant]
     Active Substance: GLYBURIDE
     Indication: DIABETES MELLITUS
     Route: 048
     Dates: start: 1994
  8. VIMOVO [Suspect]
     Active Substance: ESOMEPRAZOLE MAGNESIUM\NAPROXEN
     Indication: RHEUMATOID ARTHRITIS
     Dosage: BID
     Route: 048
     Dates: start: 2014
  9. CAPTOPRIL. [Concomitant]
     Active Substance: CAPTOPRIL
     Indication: HYPERTENSION
     Route: 048
     Dates: start: 1979
  10. METFORMIN (NON AZ DRUG) [Suspect]
     Active Substance: METFORMIN HYDROCHLORIDE
     Indication: DIABETES MELLITUS
     Route: 048
     Dates: start: 1999

REACTIONS (11)
  - Abasia [Unknown]
  - Spinal pain [Recovered/Resolved]
  - Prostatomegaly [Recovering/Resolving]
  - Drug ineffective [Not Recovered/Not Resolved]
  - Pain in extremity [Recovered/Resolved]
  - Neck pain [Not Recovered/Not Resolved]
  - Rheumatoid arthritis [Not Recovered/Not Resolved]
  - Muscular weakness [Recovered/Resolved]
  - Incorrect drug administration duration [Unknown]
  - Arthralgia [Not Recovered/Not Resolved]
  - Drug dose omission [Not Recovered/Not Resolved]

NARRATIVE: CASE EVENT DATE: 2010
